FAERS Safety Report 12251540 (Version 1)
Quarter: 2016Q2

REPORT INFORMATION
  Report Type: Spontaneous
  Country: US (occurrence: US)
  Receive Date: 20160410
  Receipt Date: 20160410
  Transmission Date: 20160815
  Serious: No
  Sender: FDA-Public Use
  Company Number: US-JNJFOC-20160227137

PATIENT
  Sex: Female

DRUGS (2)
  1. INVEGA [Suspect]
     Active Substance: PALIPERIDONE
     Indication: PRODUCT USED FOR UNKNOWN INDICATION
     Route: 048
  2. INVEGA SUSTENNA [Suspect]
     Active Substance: PALIPERIDONE PALMITATE
     Indication: PRODUCT USED FOR UNKNOWN INDICATION
     Route: 030

REACTIONS (12)
  - Overdose [Unknown]
  - Injection site warmth [Unknown]
  - General physical health deterioration [Unknown]
  - Feeling hot [Unknown]
  - Tremor [Unknown]
  - Feeling abnormal [Unknown]
  - Photosensitivity reaction [Unknown]
  - Insomnia [Unknown]
  - Dysgeusia [Unknown]
  - Thirst [Unknown]
  - Adverse drug reaction [Unknown]
  - Hyperacusis [Unknown]
